FAERS Safety Report 7425473-1 (Version None)
Quarter: 2011Q2

REPORT INFORMATION
  Report Type: 
  Country: None (occurrence: None)
  Receive Date: 20110420
  Receipt Date: 20110415
  Transmission Date: 20111010
  Serious: Yes (Death, Hospitalization)
  Sender: FDA-Public Use
  Company Number: TH-EISAI INC-E7389-01092-CLI-TH

PATIENT
  Sex: Female
  Weight: 76 kg

DRUGS (1)
  1. E7389 (BOLD) [Suspect]
     Indication: NON-SMALL CELL LUNG CANCER
     Route: 041
     Dates: start: 20101125, end: 20101202

REACTIONS (2)
  - PNEUMONIA [None]
  - STOMATITIS [None]
